FAERS Safety Report 7953499-8 (Version None)
Quarter: 2011Q4

REPORT INFORMATION
  Report Type: 
  Country: None (occurrence: None)
  Receive Date: 20111202
  Receipt Date: 20111129
  Transmission Date: 20120403
  Serious: Yes (Hospitalization, Disabling, Other)
  Sender: FDA-Public Use
  Company Number: JP-PFIZER INC-2011265050

PATIENT
  Age: 79 Year
  Sex: Female
  Weight: 42.1 kg

DRUGS (19)
  1. ZOSYN [Concomitant]
     Indication: LIVER ABSCESS
  2. LYRICA [Suspect]
     Indication: NEUROPATHY PERIPHERAL
     Dosage: 25 MG, 1X/DAY
     Route: 048
     Dates: start: 20110707, end: 20110713
  3. LYRICA [Suspect]
     Dosage: 75 MG, 1X/DAY
     Route: 048
     Dates: start: 20110714, end: 20110727
  4. CONIEL [Concomitant]
     Dosage: UNK
  5. DEPAS [Concomitant]
     Dosage: UNK
  6. SUMILU STICK [Concomitant]
     Dosage: UNK
  7. ZOSYN [Concomitant]
     Indication: INFECTION
     Dosage: 4.5 G, 3X/DAY
     Dates: start: 20110908, end: 20111013
  8. LYRICA [Suspect]
     Dosage: 75 MG, 1X/DAY
     Route: 048
     Dates: start: 20111013, end: 20111016
  9. GANATON [Concomitant]
     Dosage: UNK
  10. TARIVID OPHTHALMIC [Concomitant]
     Dosage: UNK
  11. GASCON [Concomitant]
     Dosage: UNK
  12. RABEPRAZOLE SODIUM [Concomitant]
     Dosage: UNK
  13. MAGNESIUM SULFATE [Concomitant]
     Dosage: UNK
  14. METHYCOBAL [Concomitant]
     Dosage: UNK
  15. URSO 250 [Concomitant]
     Dosage: UNK
  16. MIYA BM [Concomitant]
     Dosage: UNK
  17. LYRICA [Suspect]
     Dosage: 75 MG, 2X/DAY
     Route: 048
     Dates: start: 20110728, end: 20110831
  18. PRAVASTATIN SODIUM [Concomitant]
     Dosage: UNK
  19. COSPANON [Concomitant]
     Dosage: UNK

REACTIONS (1)
  - TUBULOINTERSTITIAL NEPHRITIS [None]
